FAERS Safety Report 26160251 (Version 1)
Quarter: 2025Q4

REPORT INFORMATION
  Report Type: Spontaneous
  Country: EU (occurrence: EU)
  Receive Date: 20251216
  Receipt Date: 20251216
  Transmission Date: 20260117
  Serious: Yes (Death, Life-Threatening)
  Sender: ROCHE
  Company Number: EU-BoehringerIngelheim-2025-BI-105335

PATIENT
  Age: 81 Year
  Sex: Female

DRUGS (4)
  1. METALYSE [Suspect]
     Active Substance: TENECTEPLASE
     Indication: Infarction
     Route: 042
  2. ASPIRIN [Concomitant]
     Active Substance: ASPIRIN
     Indication: Product used for unknown indication
     Route: 048
  3. ROSUVASTATIN [Concomitant]
     Active Substance: ROSUVASTATIN
     Indication: Product used for unknown indication
     Route: 048
  4. CANDESARTAN [Concomitant]
     Active Substance: CANDESARTAN
     Indication: Product used for unknown indication
     Route: 048

REACTIONS (2)
  - Haemorrhage intracranial [Recovered/Resolved]
  - Infarction [Fatal]

NARRATIVE: CASE EVENT DATE: 20251108
